FAERS Safety Report 7784884-5 (Version None)
Quarter: 2011Q3

REPORT INFORMATION
  Report Type: 
  Country: None (occurrence: None)
  Receive Date: 20110928
  Receipt Date: 20110919
  Transmission Date: 20111222
  Serious: Yes (Hospitalization, Other)
  Sender: FDA-Public Use
  Company Number: US-BAYER-201040130NA

PATIENT
  Age: 19 Year
  Sex: Female

DRUGS (4)
  1. PHENAZOPYRIDINE HCL TAB [Concomitant]
     Dosage: 200 MG, UNK
     Dates: start: 20061031
  2. MACROBID [Concomitant]
     Dosage: 100 MG, UNK
     Dates: start: 20061031
  3. YASMIN [Suspect]
     Indication: CONTRACEPTION
     Dosage: UNK
     Dates: start: 20060801, end: 20070101
  4. YASMIN [Suspect]
     Indication: ACNE

REACTIONS (8)
  - ABDOMINAL PAIN UPPER [None]
  - BACK PAIN [None]
  - CHOLECYSTITIS CHRONIC [None]
  - DIARRHOEA [None]
  - OESOPHAGEAL SPASM [None]
  - CYSTITIS [None]
  - IRRITABLE BOWEL SYNDROME [None]
  - CHOLECYSTECTOMY [None]
